FAERS Safety Report 16353802 (Version 1)
Quarter: 2019Q2

REPORT INFORMATION
  Report Type: Spontaneous
  Country: TR (occurrence: TR)
  Receive Date: 20190524
  Receipt Date: 20190524
  Transmission Date: 20190711
  Serious: Yes (Other)
  Sender: FDA-Public Use
  Company Number: PHHY2019TR116125

PATIENT
  Age: 3 Year
  Sex: Male

DRUGS (1)
  1. BENZYLPENICILLIN [Suspect]
     Active Substance: PENICILLIN G
     Indication: SKIN TEST
     Dosage: 10000 U/ML, UNK
     Route: 065

REACTIONS (3)
  - Skin test positive [Unknown]
  - Erythema [Unknown]
  - Urticaria [Unknown]
